FAERS Safety Report 8354994-2 (Version None)
Quarter: 2012Q2

REPORT INFORMATION
  Report Type: 
  Country: None (occurrence: None)
  Receive Date: 20120511
  Receipt Date: 20120502
  Transmission Date: 20120825
  Serious: Yes (Hospitalization, Other)
  Sender: FDA-Public Use
  Company Number: JP-JNJFOC-20120308996

PATIENT
  Age: 82 Year
  Sex: Male

DRUGS (2)
  1. MOTILIUM [Concomitant]
     Route: 065
  2. TRAMADOL HYDROCHLORIDE AND ACETAMINOPHEN [Suspect]
     Indication: PAIN
     Dosage: 2 DF X 1 PER 1 DAY
     Route: 048
     Dates: start: 20120227, end: 20120306

REACTIONS (2)
  - HOSPITALISATION [None]
  - URINARY RETENTION [None]
